FAERS Safety Report 18215429 (Version 1)
Quarter: 2020Q3

REPORT INFORMATION
  Report Type: Spontaneous
  Country: IR (occurrence: IR)
  Receive Date: 20200831
  Receipt Date: 20200831
  Transmission Date: 20201103
  Serious: Yes (Other)
  Sender: FDA-Public Use
  Company Number: IR-COEPTIS PHARMACEUTICALS, INC.-COE-2020-000027

PATIENT
  Sex: Female

DRUGS (1)
  1. AMLODIPINE [Suspect]
     Active Substance: AMLODIPINE BESYLATE
     Indication: HYPERTENSION

REACTIONS (4)
  - Pre-eclampsia [Unknown]
  - Premature labour [Unknown]
  - Premature separation of placenta [Unknown]
  - Exposure during pregnancy [Unknown]
